FAERS Safety Report 12800816 (Version 2)
Quarter: 2016Q4

REPORT INFORMATION
  Report Type: Report from Study
  Country: US (occurrence: US)
  Receive Date: 20161002
  Receipt Date: 20161020
  Transmission Date: 20170207
  Serious: Yes (Other)
  Sender: FDA-Public Use
  Company Number: US-AMGEN-USASL2016130395

PATIENT
  Age: 76 Year
  Sex: Female
  Weight: 75.74 kg

DRUGS (1)
  1. REPATHA [Suspect]
     Active Substance: EVOLOCUMAB
     Indication: BLOOD CHOLESTEROL INCREASED
     Dosage: 140 MG, Q2WK
     Route: 030
     Dates: start: 20160405, end: 20160912

REACTIONS (7)
  - Diarrhoea [Recovered/Resolved]
  - Pain [Recovered/Resolved]
  - Weight fluctuation [Recovered/Resolved]
  - Decreased appetite [Recovered/Resolved]
  - Arthralgia [Recovered/Resolved]
  - Asthma [Unknown]
  - Dyspnoea [Recovered/Resolved]

NARRATIVE: CASE EVENT DATE: 201604
